FAERS Safety Report 13952403 (Version 1)
Quarter: 2017Q3

REPORT INFORMATION
  Report Type: Spontaneous
  Country: GB (occurrence: GB)
  Receive Date: 20170911
  Receipt Date: 20170911
  Transmission Date: 20171128
  Serious: Yes (Hospitalization)
  Sender: FDA-Public Use
  Company Number: GB-TORRENT-00015584

PATIENT
  Age: 83 Year
  Sex: Female

DRUGS (6)
  1. FERROUS FUMARATE [Concomitant]
     Active Substance: FERROUS FUMARATE
  2. IRBESARTAN. [Concomitant]
     Active Substance: IRBESARTAN
  3. PRAVASTATIN. [Concomitant]
     Active Substance: PRAVASTATIN
  4. DOXAZOSIN MESILATE [Concomitant]
     Active Substance: DOXAZOSIN MESYLATE
  5. OMEPRAZOLE. [Concomitant]
     Active Substance: OMEPRAZOLE
  6. RISPERIDONE. [Suspect]
     Active Substance: RISPERIDONE

REACTIONS (4)
  - Somnolence [Unknown]
  - Fall [Unknown]
  - Tremor [Recovered/Resolved]
  - Confusional state [Unknown]

NARRATIVE: CASE EVENT DATE: 20170716
